FAERS Safety Report 24135424 (Version 1)
Quarter: 2024Q3

REPORT INFORMATION
  Report Type: Spontaneous
  Country: US (occurrence: US)
  Receive Date: 20240725
  Receipt Date: 20240725
  Transmission Date: 20241017
  Serious: Yes (Hospitalization)
  Sender: SAMSUNG BIOEPIS
  Company Number: US-SAMSUNG BIOEPIS-SB-2024-21812

PATIENT
  Age: 13 Year
  Sex: Female

DRUGS (3)
  1. ADALIMUMAB [Suspect]
     Active Substance: ADALIMUMAB\ISOPROPYL ALCOHOL
     Indication: Colitis ulcerative
     Dosage: 160, 80, THEN 40 MG EVERY 2 WEEKS;
     Route: 065
  2. ADALIMUMAB [Suspect]
     Active Substance: ADALIMUMAB\ISOPROPYL ALCOHOL
     Route: 065
  3. USTEKINUMAB [Suspect]
     Active Substance: USTEKINUMAB
     Indication: Colitis
     Dosage: MAXIMAL DOSING AND FREQUENCY.
     Route: 065

REACTIONS (6)
  - Colitis ulcerative [Unknown]
  - Decreased appetite [Unknown]
  - Colitis [Unknown]
  - Drug ineffective [Unknown]
  - Off label use [Unknown]
  - Drug level below therapeutic [Unknown]
